FAERS Safety Report 4692448-5 (Version None)
Quarter: 2005Q2

REPORT INFORMATION
  Report Type: 
  Country: None (occurrence: None)
  Receive Date: 20050613
  Receipt Date: 20050503
  Transmission Date: 20051028
  Serious: Yes (Hospitalization)
  Sender: FDA-Public Use
  Company Number: 2005-00978

PATIENT
  Age: 65 Year
  Sex: Male
  Weight: 95.2 kg

DRUGS (1)
  1. VELCADE [Suspect]
     Indication: MULTIPLE MYELOMA
     Dosage: 1.30 MG/M2, DAY 1, 4, 8, IV BOLUS
     Route: 040
     Dates: start: 20050412

REACTIONS (1)
  - FEBRILE NEUTROPENIA [None]
